FAERS Safety Report 17557516 (Version 1)
Quarter: 2020Q1

REPORT INFORMATION
  Report Type: Report from Study
  Country: BR (occurrence: BR)
  Receive Date: 20200318
  Receipt Date: 20200318
  Transmission Date: 20200409
  Serious: Yes (Hospitalization)
  Sender: FDA-Public Use
  Company Number: BR-UCBSA-2020010772

PATIENT
  Sex: Female
  Weight: 50 kg

DRUGS (11)
  1. ATIP [Concomitant]
     Indication: PRODUCT USED FOR UNKNOWN INDICATION
  2. DIOVAN [Concomitant]
     Active Substance: VALSARTAN
     Indication: BLOOD PRESSURE MEASUREMENT
  3. GLICLAZIDA [Concomitant]
     Active Substance: GLICLAZIDE
     Indication: PRODUCT USED FOR UNKNOWN INDICATION
  4. SOMALGIN CARDIO [Concomitant]
     Active Substance: ASPIRIN\DIHYDROXYALUMINUM AMINOACETATE ANHYDROUS\MAGNESIUM CARBONATE
     Indication: PRODUCT USED FOR UNKNOWN INDICATION
  5. LEVETIRACETAM. [Suspect]
     Active Substance: LEVETIRACETAM
     Indication: OFF LABEL USE
  6. KEPPRA [Suspect]
     Active Substance: LEVETIRACETAM
     Indication: OFF LABEL USE
     Dosage: PATIENT PUT HALF TABLET ON HER LEG TO AVOID THROMBOSIS AND BURST BLISTERS
  7. VASOGARD [Concomitant]
     Active Substance: CILOSTAZOL
     Indication: VEIN DISORDER
  8. KEPPRA [Suspect]
     Active Substance: LEVETIRACETAM
     Indication: NERVOUSNESS
     Dosage: 500 MILLIGRAM, 2X/DAY (BID)
     Route: 048
     Dates: start: 202002
  9. RUSOVAS [Concomitant]
     Active Substance: ROSUVASTATIN
     Indication: PRODUCT USED FOR UNKNOWN INDICATION
  10. LEVETIRACETAM. [Suspect]
     Active Substance: LEVETIRACETAM
     Indication: NERVOUSNESS
     Dosage: 3 MILLILITER, 2X/DAY (BID)
     Route: 048
     Dates: start: 202002, end: 202002
  11. GLIFAGE [Concomitant]
     Active Substance: METFORMIN HYDROCHLORIDE
     Indication: DIABETES MELLITUS

REACTIONS (4)
  - Blister [Not Recovered/Not Resolved]
  - Intentional product misuse [Unknown]
  - Thermal burn [Not Recovered/Not Resolved]
  - Off label use [Unknown]

NARRATIVE: CASE EVENT DATE: 2020
